FAERS Safety Report 11433740 (Version 2)
Quarter: 2015Q4

REPORT INFORMATION
  Report Type: Report from Study
  Country: BR (occurrence: BR)
  Receive Date: 20150831
  Receipt Date: 20151120
  Transmission Date: 20160304
  Serious: Yes (Other)
  Sender: FDA-Public Use
  Company Number: PHHY2015BR102850

PATIENT
  Sex: Male
  Weight: 68 kg

DRUGS (1)
  1. ACLASTA [Suspect]
     Active Substance: ZOLEDRONIC ACID
     Indication: OSTEOPOROSIS PROPHYLAXIS
     Dosage: 5 MG, Q12MO
     Route: 042
     Dates: start: 20140924, end: 20140924

REACTIONS (7)
  - Abdominal pain [Not Recovered/Not Resolved]
  - Weight decreased [Not Recovered/Not Resolved]
  - Ascites [Not Recovered/Not Resolved]
  - Asthenia [Unknown]
  - Abdominal distension [Not Recovered/Not Resolved]
  - Malaise [Unknown]
  - General physical health deterioration [Not Recovered/Not Resolved]
